FAERS Safety Report 6237995-X (Version None)
Quarter: 2009Q2

REPORT INFORMATION
  Report Type: 
  Country: None (occurrence: None)
  Receive Date: 20090617
  Receipt Date: 20090617
  Transmission Date: 20091009
  Serious: Yes (Hospitalization)
  Sender: FDA-Public Use
  Company Number: None

PATIENT
  Sex: Male

DRUGS (6)
  1. REVLIMID [Suspect]
     Indication: PROSTATE CANCER
     Dosage: 25 MG QD X 21 DAYS PO
     Route: 048
     Dates: start: 20090129, end: 20090215
  2. LIPITOR [Concomitant]
  3. LUPRON [Concomitant]
  4. DITROPAM [Concomitant]
  5. ZOMETA [Concomitant]
  6. ASPIRIN [Concomitant]

REACTIONS (2)
  - MALAISE [None]
  - PLEURAL EFFUSION [None]
